FAERS Safety Report 9164993 (Version 2)
Quarter: 2014Q2

REPORT INFORMATION
  Report Type: Spontaneous
  Country: US (occurrence: US)
  Receive Date: 20130315
  Receipt Date: 20140520
  Transmission Date: 20141212
  Serious: Yes (Hospitalization)
  Sender: FDA-Public Use
  Company Number: US-BAYER-2013-031175

PATIENT
  Age: 33 Year
  Sex: Female
  Weight: 140.59 kg

DRUGS (10)
  1. YASMIN [Suspect]
     Dosage: UNK
     Dates: start: 200408, end: 2006
  2. OCELLA [Suspect]
     Dosage: UNK
     Dates: start: 200408, end: 2006
  3. YAZ [Suspect]
     Dosage: UNK
     Dates: start: 200408, end: 2006
  4. LEXAPRO [Concomitant]
     Dosage: 10MG, 2 DAILY
  5. ELIDEL [Concomitant]
  6. KEFLEX [Concomitant]
  7. CEPHALEXIN [Concomitant]
     Dosage: 500 MG, UNK
  8. HYDROCODONE W/APAP [Concomitant]
     Dosage: 7.5/650MG
  9. OXYCODONE/APAP [Concomitant]
     Dosage: 5/325MG
  10. CLINDAMYCIN [Concomitant]
     Dosage: 150 MG, UNK

REACTIONS (8)
  - Pulmonary embolism [Recovering/Resolving]
  - Deep vein thrombosis [Recovered/Resolved]
  - Injury [Recovering/Resolving]
  - Pain [None]
  - General physical health deterioration [Recovering/Resolving]
  - Anxiety [None]
  - Emotional distress [None]
  - Pain [Recovering/Resolving]
